FAERS Safety Report 15169110 (Version 12)
Quarter: 2022Q2

REPORT INFORMATION
  Report Type: Report from Study
  Country: CN (occurrence: None)
  Receive Date: 20180720
  Receipt Date: 20220623
  Transmission Date: 20220720
  Serious: Yes (Hospitalization)
  Sender: FDA-Public Use
  Company Number: CN-ROCHE-2146311

PATIENT
  Age: 61 Year
  Sex: Female
  Weight: 50 kg

DRUGS (16)
  1. PLACEBO [Suspect]
     Active Substance: UNSPECIFIED INGREDIENT
     Indication: Ovarian cancer
     Dosage: ON DAY 1 OF EACH 21-DAY CYCLE. STARTED ON 16/JUN/2018?DATE OF MOST RECENT DOSE OF BLINDED ATEZOLIZUM
     Route: 042
     Dates: start: 20180616
  2. BEVACIZUMAB [Suspect]
     Active Substance: BEVACIZUMAB
     Indication: Ovarian cancer
     Dosage: STARTED ON 16/JUN/2018?DATE OF MOST RECENT DOSE (825 MG) OF BEVACIZUMAB PRIOR TO SAE ONSET 05/JUL/20
     Route: 042
     Dates: start: 20180616
  3. PACLITAXEL [Suspect]
     Active Substance: PACLITAXEL
     Indication: Ovarian cancer
     Dosage: DATE OF MOST RECENT DOSE (260 MG) OF PACLITAXEL PRIOR TO SAE ONSET 15/JUN/2018?DATE OF MOST RECENT D
     Route: 042
     Dates: start: 20180615
  4. CARBOPLATIN [Suspect]
     Active Substance: CARBOPLATIN
     Indication: Ovarian cancer
     Dosage: AT A DOSE TO ACHIEVE A TARGET AREA UNDER THE CURVE (AUC) OF 6 MILLIGRAMS PER MILLILITER*MINUTE ?DATE
     Route: 042
     Dates: start: 20180615
  5. POTASSIUM CHLORIDE [Concomitant]
     Active Substance: POTASSIUM CHLORIDE
     Dates: start: 20180704, end: 20180704
  6. POTASSIUM CHLORIDE [Concomitant]
     Active Substance: POTASSIUM CHLORIDE
     Dates: start: 20180726, end: 20180731
  7. ASCORBIC ACID [Concomitant]
     Active Substance: ASCORBIC ACID
     Dates: start: 20180704, end: 20180704
  8. ASCORBIC ACID [Concomitant]
     Active Substance: ASCORBIC ACID
     Dates: start: 20180706, end: 20180706
  9. ASCORBIC ACID [Concomitant]
     Active Substance: ASCORBIC ACID
     Dates: start: 20180726, end: 20180726
  10. PYRIDOXINE [Concomitant]
     Active Substance: PYRIDOXINE
     Dates: start: 20180704, end: 20180704
  11. CIMETIDINE [Concomitant]
     Active Substance: CIMETIDINE
     Dates: start: 20180704, end: 20180704
  12. DEXAMETHASONE ACETATE [Concomitant]
     Active Substance: DEXAMETHASONE ACETATE
     Dates: start: 20180704, end: 20180704
  13. DIPHENHYDRAMINE HYDROCHLORIDE [Concomitant]
     Active Substance: DIPHENHYDRAMINE HYDROCHLORIDE
     Dates: start: 20180704, end: 20180704
  14. LIDOCAINE [Concomitant]
     Active Substance: LIDOCAINE
     Dates: start: 20180705, end: 20180705
  15. ONDANSETRON HYDROCHLORIDE [Concomitant]
     Active Substance: ONDANSETRON HYDROCHLORIDE
     Indication: Vomiting
     Dates: start: 20180705, end: 20180705
  16. GLYCERIN [Concomitant]
     Active Substance: GLYCERIN
     Dosage: MAINTAIN DEFECATE UNOBSTRUCTED
     Dates: start: 20180726, end: 20180726

REACTIONS (2)
  - Small intestinal obstruction [Recovered/Resolved with Sequelae]
  - Pneumonia [Recovered/Resolved]

NARRATIVE: CASE EVENT DATE: 20180625
